FAERS Safety Report 20705197 (Version 1)
Quarter: 2022Q2

REPORT INFORMATION
  Report Type: Spontaneous
  Country: US (occurrence: US)
  Receive Date: 20220413
  Receipt Date: 20220413
  Transmission Date: 20220721
  Serious: Yes (Other)
  Sender: FDA-Public Use
  Company Number: US-PFIZER INC-202200516636

PATIENT
  Sex: Female

DRUGS (3)
  1. ADRIAMYCIN [Suspect]
     Active Substance: DOXORUBICIN HYDROCHLORIDE
     Indication: Breast cancer metastatic
     Dosage: UNK
  2. CYCLOPHOSPHAMIDE [Concomitant]
     Active Substance: CYCLOPHOSPHAMIDE
     Indication: Breast cancer metastatic
     Dosage: UNK
  3. TAXOL [Concomitant]
     Active Substance: PACLITAXEL
     Indication: Breast cancer metastatic
     Dosage: UNK

REACTIONS (3)
  - Neuropathy peripheral [Unknown]
  - Pulmonary mass [Unknown]
  - Pancreatic cyst [Unknown]
